FAERS Safety Report 18940398 (Version 1)
Quarter: 2021Q1

REPORT INFORMATION
  Report Type: Spontaneous
  Country: US (occurrence: US)
  Receive Date: 20210225
  Receipt Date: 20210225
  Transmission Date: 20210420
  Serious: Yes (Other)
  Sender: FDA-Public Use
  Company Number: None

PATIENT
  Age: 59 Year
  Sex: Female
  Weight: 75.6 kg

DRUGS (1)
  1. PROPYLTHIOURACIL. [Suspect]
     Active Substance: PROPYLTHIOURACIL
     Indication: HYPERTHYROIDISM
     Dosage: ?          QUANTITY:90 TABLET(S);?
     Route: 048
     Dates: start: 20210224, end: 20210225

REACTIONS (7)
  - Vertigo [None]
  - Lip swelling [None]
  - Headache [None]
  - Abdominal pain upper [None]
  - Paraesthesia oral [None]
  - Throat irritation [None]
  - Pharyngeal paraesthesia [None]

NARRATIVE: CASE EVENT DATE: 20210224
